FAERS Safety Report 7220420-X (Version None)
Quarter: 2011Q1

REPORT INFORMATION
  Report Type: 
  Country: None (occurrence: None)
  Receive Date: 20110111
  Receipt Date: 20110104
  Transmission Date: 20110831
  Serious: Yes (Disabling, Other)
  Sender: FDA-Public Use
  Company Number: FR-ABBOTT-10P-056-0684284-00

PATIENT
  Age: 43 Year
  Sex: Female

DRUGS (4)
  1. MESALAZINE [Concomitant]
     Indication: PRODUCT USED FOR UNKNOWN INDICATION
  2. HUMIRA [Suspect]
     Indication: ANKYLOSING SPONDYLITIS
     Route: 058
     Dates: start: 20100517, end: 20100927
  3. FLECTOR [Concomitant]
     Indication: PRODUCT USED FOR UNKNOWN INDICATION
  4. HUMIRA [Suspect]
     Indication: CROHN'S DISEASE

REACTIONS (5)
  - PUSTULAR PSORIASIS [None]
  - DERMATOSIS [None]
  - DERMATITIS [None]
  - DERMATITIS PSORIASIFORM [None]
  - PAIN OF SKIN [None]
